FAERS Safety Report 9261525 (Version 1)
Quarter: 2013Q2

REPORT INFORMATION
  Report Type: Spontaneous
  Country: GB (occurrence: GB)
  Receive Date: 20130429
  Receipt Date: 20130429
  Transmission Date: 20140414
  Serious: Yes (Disabling, Other)
  Sender: FDA-Public Use
  Company Number: PHHY2013GB040201

PATIENT
  Age: 92 Year
  Sex: Female

DRUGS (7)
  1. CIPROFLOXACIN [Suspect]
     Indication: BRONCHITIS
     Dosage: 1 DF, TID
     Route: 048
     Dates: start: 20130208
  2. PREDNISOLONE [Concomitant]
  3. TRAMADOL [Concomitant]
  4. DIGOXIN [Concomitant]
  5. AMITRIPTYLINE [Concomitant]
  6. RAMIPRIL [Concomitant]
  7. RISEDRONATE [Concomitant]
     Indication: OSTEOPOROSIS

REACTIONS (5)
  - Abasia [Not Recovered/Not Resolved]
  - Tendonitis [Not Recovered/Not Resolved]
  - Gait disturbance [Not Recovered/Not Resolved]
  - Tendon pain [Not Recovered/Not Resolved]
  - Pain in extremity [Not Recovered/Not Resolved]
